FAERS Safety Report 9720078 (Version 2)
Quarter: 2013Q4

REPORT INFORMATION
  Report Type: Spontaneous
  Country: JP (occurrence: JP)
  Receive Date: 20131128
  Receipt Date: 20131218
  Transmission Date: 20140711
  Serious: Yes (Hospitalization)
  Sender: FDA-Public Use
  Company Number: JP-ASTRAZENECA-2013SE86215

PATIENT
  Sex: Male

DRUGS (4)
  1. NEXIUM [Suspect]
     Indication: PROPHYLAXIS AGAINST GASTROINTESTINAL ULCER
     Route: 048
     Dates: start: 201308
  2. NEXIUM [Interacting]
     Indication: PROPHYLAXIS AGAINST GASTROINTESTINAL ULCER
     Route: 048
     Dates: end: 20131117
  3. WARFARIN POTASSIUM [Interacting]
     Route: 048
  4. CELECOX [Suspect]
     Route: 048
     Dates: start: 201308

REACTIONS (4)
  - Drug interaction [Recovering/Resolving]
  - Large intestinal haemorrhage [Recovered/Resolved]
  - International normalised ratio increased [Recovering/Resolving]
  - Melaena [Unknown]
